FAERS Safety Report 24177199 (Version 2)
Quarter: 2024Q3

REPORT INFORMATION
  Report Type: Report from Study
  Country: US (occurrence: US)
  Receive Date: 20240806
  Receipt Date: 20240808
  Transmission Date: 20241017
  Serious: Yes (Other)
  Sender: NOVARTIS
  Company Number: US-002147023-NVSC2024US098082

PATIENT
  Sex: Female

DRUGS (1)
  1. KESIMPTA [Suspect]
     Active Substance: OFATUMUMAB
     Indication: Product used for unknown indication
     Dosage: 20 MG, QMO
     Route: 058

REACTIONS (5)
  - Multiple sclerosis relapse [Unknown]
  - Cognitive disorder [Unknown]
  - Tremor [Not Recovered/Not Resolved]
  - COVID-19 [Unknown]
  - Product temperature excursion issue [Unknown]
